FAERS Safety Report 6375989-4 (Version None)
Quarter: 2009Q3

REPORT INFORMATION
  Report Type: 
  Country: None (occurrence: None)
  Receive Date: 20090921
  Receipt Date: 20090909
  Transmission Date: 20100115
  Serious: Yes (Other)
  Sender: FDA-Public Use
  Company Number: 2009AP003641

PATIENT
  Age: 72 Year
  Sex: Male

DRUGS (6)
  1. ALENDRONATE SODIUM [Suspect]
     Indication: PROPHYLAXIS
     Dosage: 70 MG; QW PO
     Route: 048
     Dates: start: 19700101
  2. OMEPRAZOLE [Suspect]
     Dosage: 20 MG; QD PO
     Route: 048
     Dates: start: 20030101
  3. PREDNISOLONE [Suspect]
     Indication: RHEUMATOID ARTHRITIS
     Dosage: 7.5 MG; QD PO
     Route: 048
     Dates: start: 20051001
  4. NAPROXEN [Suspect]
     Indication: RHEUMATOID ARTHRITIS
     Dosage: PO
     Route: 048
     Dates: start: 19970101
  5. ETANERCEPT (ETANERCEPT) [Suspect]
     Indication: RHEUMATOID ARTHRITIS
     Dosage: 50 MG; QW SC
     Route: 058
     Dates: start: 20090120, end: 20090501
  6. ALLOPURINOL [Suspect]
     Indication: GOUT
     Dosage: PO
     Route: 048
     Dates: start: 19680101

REACTIONS (4)
  - DIVERTICULITIS [None]
  - GOUT [None]
  - RECTAL HAEMORRHAGE [None]
  - RHEUMATOID ARTHRITIS [None]
